FAERS Safety Report 10370318 (Version 2)
Quarter: 2015Q1

REPORT INFORMATION
  Report Type: Spontaneous
  Country: US (occurrence: US)
  Receive Date: 20140808
  Receipt Date: 20150112
  Transmission Date: 20150720
  Serious: Yes (Other)
  Sender: FDA-Public Use
  Company Number: US-ELI_LILLY_AND_COMPANY-US201407011503

PATIENT
  Age: 73 Year
  Sex: Male

DRUGS (16)
  1. ZYPREXA [Suspect]
     Active Substance: OLANZAPINE
     Indication: DEPRESSION
     Dosage: UNK UNK, UNKNOWN
     Route: 065
     Dates: start: 200509
  2. ZYPREXA [Suspect]
     Active Substance: OLANZAPINE
     Dosage: 5 MG, EACH EVENING
     Route: 048
  3. BRIMONIDINE TARTRATE. [Concomitant]
     Active Substance: BRIMONIDINE TARTRATE
     Indication: PRODUCT USED FOR UNKNOWN INDICATION
     Dosage: 1 GTT, BID
     Route: 047
  4. ATENOLOL. [Concomitant]
     Active Substance: ATENOLOL
     Indication: PRODUCT USED FOR UNKNOWN INDICATION
     Dosage: 100 MG, QD
     Route: 048
  5. MULTIVITAMIN                       /00097801/ [Concomitant]
     Active Substance: VITAMINS
     Indication: PRODUCT USED FOR UNKNOWN INDICATION
     Dosage: 1 DF, QD
     Route: 048
  6. PAROXETINE [Concomitant]
     Active Substance: PAROXETINE\PAROXETINE HYDROCHLORIDE
     Indication: DEPRESSION
     Dosage: 40 MG, QD
     Route: 048
  7. ZYPREXA [Suspect]
     Active Substance: OLANZAPINE
     Dosage: 2 DF, UNKNOWN
     Route: 065
  8. ZYPREXA [Suspect]
     Active Substance: OLANZAPINE
     Dosage: UNK UNK, UNKNOWN
     Route: 065
     Dates: end: 201212
  9. LATANOPROST. [Concomitant]
     Active Substance: LATANOPROST
     Indication: GLAUCOMA
     Dosage: 1 GTT, QD
     Route: 047
  10. SIMVASTATIN. [Concomitant]
     Active Substance: SIMVASTATIN
     Indication: BLOOD CHOLESTEROL INCREASED
     Dosage: 20 MG, EACH EVENING
     Route: 048
  11. TRAVOPROST [Concomitant]
     Active Substance: TRAVOPROST
     Indication: GLAUCOMA
     Dosage: 1 DF, EACH EVENING
     Route: 047
  12. DORZOLAMIDE [Concomitant]
     Active Substance: DORZOLAMIDE
     Indication: PRODUCT USED FOR UNKNOWN INDICATION
     Dosage: 1 GTT, BID
     Route: 047
  13. FINASTERIDE. [Concomitant]
     Active Substance: FINASTERIDE
     Indication: PROSTATE EXAMINATION
     Dosage: 5 MG, QD
     Route: 048
  14. MIRTAZAPINE. [Concomitant]
     Active Substance: MIRTAZAPINE
     Indication: PRODUCT USED FOR UNKNOWN INDICATION
     Dosage: 30 MG, EACH EVENING
     Route: 048
  15. IPRATROPIUM BROMIDE. [Concomitant]
     Active Substance: IPRATROPIUM BROMIDE
     Indication: PRODUCT USED FOR UNKNOWN INDICATION
     Dosage: 2 DF, PRN
     Route: 055
  16. LORAZEPAM. [Concomitant]
     Active Substance: LORAZEPAM
     Indication: ANXIETY
     Dosage: 0.5 MG, TID
     Route: 048

REACTIONS (38)
  - Gait disturbance [Not Recovered/Not Resolved]
  - Muscular weakness [Not Recovered/Not Resolved]
  - Anxiety [Unknown]
  - Micturition urgency [Unknown]
  - Visual acuity reduced [Not Recovered/Not Resolved]
  - Balance disorder [Unknown]
  - Neck pain [Unknown]
  - Oesophagitis [Unknown]
  - Faecaloma [Unknown]
  - Appetite disorder [Unknown]
  - Sedation [Unknown]
  - Photosensitivity reaction [Unknown]
  - Myalgia [Not Recovered/Not Resolved]
  - Flatulence [Recovered/Resolved]
  - Amnesia [Unknown]
  - Somnolence [Recovered/Resolved]
  - Akathisia [Unknown]
  - Pruritus [Unknown]
  - Bone pain [Unknown]
  - Joint stiffness [Unknown]
  - Faecal incontinence [Unknown]
  - Paraesthesia [Unknown]
  - Hypotension [Recovered/Resolved]
  - Hyperlipidaemia [Recovering/Resolving]
  - Glaucoma [Not Recovered/Not Resolved]
  - Atrial fibrillation [Unknown]
  - Muscle spasms [Unknown]
  - Speech disorder [Unknown]
  - Pain [Unknown]
  - Asthenia [Not Recovered/Not Resolved]
  - Concussion [Unknown]
  - Leukopenia [Not Recovered/Not Resolved]
  - Loss of consciousness [Unknown]
  - Extraocular muscle paresis [Not Recovered/Not Resolved]
  - Mouth ulceration [Unknown]
  - Pollakiuria [Unknown]
  - Dizziness [Unknown]
  - Off label use [Unknown]

NARRATIVE: CASE EVENT DATE: 2006
